FAERS Safety Report 4711532-0 (Version None)
Quarter: 2005Q3

REPORT INFORMATION
  Report Type: 
  Country: None (occurrence: None)
  Receive Date: 20050708
  Receipt Date: 20050708
  Transmission Date: 20060218
  Serious: Yes (Other)
  Sender: FDA-Public Use
  Company Number: None

PATIENT
  Age: 61 Year
  Sex: Male
  Weight: 81.2 kg

DRUGS (1)
  1. CEPHALEXIN [Suspect]
     Indication: CELLULITIS ORBITAL
     Dosage: 2G, 500 MG Q6H ORAL
     Route: 048
     Dates: start: 20050518, end: 20050523

REACTIONS (1)
  - RASH [None]
